FAERS Safety Report 10640507 (Version 3)
Quarter: 2015Q2

REPORT INFORMATION
  Report Type: Spontaneous
  Country: US (occurrence: US)
  Receive Date: 20141209
  Receipt Date: 20150616
  Transmission Date: 20150821
  Serious: Yes (Hospitalization, Other)
  Sender: FDA-Public Use
  Company Number: US-PFIZER INC-2014337017

PATIENT
  Age: 72 Year
  Sex: Female

DRUGS (16)
  1. LAMICTAL [Interacting]
     Active Substance: LAMOTRIGINE
     Indication: BIPOLAR DISORDER
     Dosage: UNK
     Dates: start: 2008, end: 2014
  2. CALCIUM/MELATONIN/PYRIDOXINE HYDROCHLORIDE [Concomitant]
     Dosage: 5 MG, (EVERY NIGHT AT BED TIME)
     Dates: start: 2014
  3. OMEPRAZOLE. [Concomitant]
     Active Substance: OMEPRAZOLE
     Dosage: UNK
  4. THEO-DUR [Concomitant]
     Active Substance: THEOPHYLLINE ANHYDROUS
     Dosage: 300, 1X/DAY
     Dates: start: 2014
  5. KCL [Concomitant]
     Active Substance: POTASSIUM CHLORIDE
     Dosage: UNK
     Dates: start: 2014
  6. EFFEXOR [Interacting]
     Active Substance: VENLAFAXINE HYDROCHLORIDE
     Indication: BIPOLAR DISORDER
     Dosage: UNK UNK, 1X/DAY
     Dates: start: 2008, end: 2013
  7. ATENOLOL. [Suspect]
     Active Substance: ATENOLOL
     Indication: AORTIC STENOSIS
     Dosage: UNK
     Dates: start: 2013, end: 2014
  8. ALDACTONE [Suspect]
     Active Substance: SPIRONOLACTONE
     Indication: HYPERTENSION
     Dosage: UNK
     Dates: start: 2013, end: 2014
  9. LASIX [Suspect]
     Active Substance: FUROSEMIDE
     Indication: PERIPHERAL SWELLING
     Dosage: UNK
     Dates: start: 2013
  10. AMPICILLIN [Concomitant]
     Active Substance: AMPICILLIN
     Dosage: 500 MG, UNK
     Dates: start: 2015
  11. SEROTONIN [Suspect]
     Active Substance: SEROTONIN
     Indication: DEPRESSION
     Dosage: UNK, 2 CAP ONCE DAILY
     Dates: start: 2014
  12. BROFLEX [Concomitant]
     Dosage: UNK
     Dates: start: 2013
  13. PEPCID [Concomitant]
     Active Substance: FAMOTIDINE
     Dosage: 20 MG, 2X/DAY
     Dates: start: 2015
  14. VITAMIN D [Suspect]
     Active Substance: CHOLECALCIFEROL
     Indication: OSTEOPOROSIS
     Dosage: 5000 IU, 1X/DAY
     Dates: start: 2013
  15. BENEFLEX [Concomitant]
     Dosage: UNK
     Dates: start: 2013
  16. CV FORTE [Concomitant]
     Dosage: UNK (2 CAP)
     Dates: start: 2014

REACTIONS (7)
  - Dyspnoea [Not Recovered/Not Resolved]
  - Urticaria [Unknown]
  - Pruritus [Unknown]
  - Drug ineffective [Unknown]
  - Drug interaction [Recovered/Resolved]
  - Swelling [Recovered/Resolved]
  - Oedema [Recovered/Resolved]
